FAERS Safety Report 5138180-5 (Version None)
Quarter: 2006Q4

REPORT INFORMATION
  Report Type: 
  Country: None (occurrence: None)
  Receive Date: 20061030
  Receipt Date: 20060511
  Transmission Date: 20070319
  Serious: Yes (Hospitalization)
  Sender: FDA-Public Use
  Company Number: US-AMGEN-US179310

PATIENT
  Sex: Male

DRUGS (6)
  1. AMG 706 [Suspect]
     Indication: METASTATIC NEOPLASM
     Route: 048
     Dates: start: 20060412, end: 20060502
  2. PANITUMUMAB [Suspect]
     Route: 042
     Dates: start: 20060411, end: 20060502
  3. PACLITAXEL [Concomitant]
     Route: 042
  4. CARBOPLATIN [Concomitant]
     Route: 042
  5. PROTONIX [Concomitant]
     Route: 048
  6. SENOKOT [Concomitant]
     Route: 048

REACTIONS (2)
  - GALLBLADDER ENLARGEMENT [None]
  - LUNG CANCER METASTATIC [None]
